FAERS Safety Report 6729844-8 (Version None)
Quarter: 2010Q2

REPORT INFORMATION
  Report Type: 
  Country: None (occurrence: None)
  Receive Date: 20100513
  Receipt Date: 20080205
  Transmission Date: 20101027
  Serious: No
  Sender: FDA-Public Use
  Company Number: 2008-00039

PATIENT
  Age: 55 Year
  Sex: Female
  Weight: 122.4712 kg

DRUGS (8)
  1. ZICAM COLD REMEDY NASAL GEL [Suspect]
  2. DIOVAN [Concomitant]
  3. SYNTHROID [Concomitant]
  4. CYMBALTA [Concomitant]
  5. NEXIUM [Concomitant]
  6. MUTIVITAMIN [Concomitant]
  7. MSM [Concomitant]
  8. FISH OIL [Concomitant]

REACTIONS (2)
  - AGEUSIA [None]
  - ANOSMIA [None]
